FAERS Safety Report 7530136-8 (Version None)
Quarter: 2011Q2

REPORT INFORMATION
  Report Type: 
  Country: None (occurrence: None)
  Receive Date: 20110607
  Receipt Date: 20110527
  Transmission Date: 20111010
  Serious: Yes (Hospitalization)
  Sender: FDA-Public Use
  Company Number: JP-JNJFOC-20110511151

PATIENT
  Age: 5 Decade
  Sex: Male

DRUGS (5)
  1. LEVOFLOXACIN [Suspect]
     Indication: PYREXIA
     Route: 065
  2. MINOCYCLINE HCL [Suspect]
     Indication: PYREXIA
     Route: 065
  3. CEFDINIR [Suspect]
     Indication: PYREXIA
     Route: 065
  4. CEFAZOLIN [Suspect]
     Indication: PYREXIA
     Route: 065
  5. FOSFOMYCIN [Suspect]
     Indication: PYREXIA
     Route: 065

REACTIONS (1)
  - COLITIS ULCERATIVE [None]
